FAERS Safety Report 24072845 (Version 1)
Quarter: 2024Q3

REPORT INFORMATION
  Report Type: Spontaneous
  Country: US (occurrence: US)
  Receive Date: 20240710
  Receipt Date: 20240710
  Transmission Date: 20241016
  Serious: No
  Sender: AJANTA PHARMA
  Company Number: US-AJANTA-2024AJA00053

PATIENT
  Age: 80 Year
  Sex: Female
  Weight: 140 kg

DRUGS (2)
  1. DULOXETINE [Suspect]
     Active Substance: DULOXETINE
     Indication: Spinal pain
     Dates: start: 2023
  2. GABAPENTIN [Concomitant]
     Active Substance: GABAPENTIN
     Dates: start: 2024

REACTIONS (1)
  - Memory impairment [Not Recovered/Not Resolved]
